FAERS Safety Report 18124057 (Version 6)
Quarter: 2021Q2

REPORT INFORMATION
  Report Type: Report from Study
  Country: US (occurrence: US)
  Receive Date: 20200807
  Receipt Date: 20210626
  Transmission Date: 20210717
  Serious: Yes (Other)
  Sender: FDA-Public Use
  Company Number: NVSC2020US216008

PATIENT
  Age: 77 Year
  Sex: Male

DRUGS (2)
  1. ENTRESTO [Suspect]
     Active Substance: SACUBITRIL\VALSARTAN
     Indication: CARDIAC FAILURE CHRONIC
     Dosage: 1 DF (24/26 MG), BID
     Route: 048
     Dates: start: 202003
  2. ENTRESTO [Suspect]
     Active Substance: SACUBITRIL\VALSARTAN
     Dosage: 1 DF (97/ 103 MG), BID
     Route: 048

REACTIONS (12)
  - Musculoskeletal stiffness [Unknown]
  - Joint injury [Recovered/Resolved]
  - Insomnia [Unknown]
  - Hiccups [Unknown]
  - Thrombosis [Unknown]
  - Cough [Unknown]
  - Procedural shock [Recovered/Resolved]
  - Nasopharyngitis [Recovered/Resolved]
  - Dyspnoea [Not Recovered/Not Resolved]
  - Fall [Recovered/Resolved]
  - Vitamin D decreased [Unknown]
  - Vitamin B12 decreased [Unknown]

NARRATIVE: CASE EVENT DATE: 202003
